FAERS Safety Report 21640003 (Version 1)
Quarter: 2022Q4

REPORT INFORMATION
  Report Type: Report from Study
  Country: AU (occurrence: AU)
  Receive Date: 20221124
  Receipt Date: 20221124
  Transmission Date: 20230113
  Serious: Yes (Other)
  Sender: FDA-Public Use
  Company Number: AU-ABBVIE-4211769

PATIENT
  Age: 64 Year
  Sex: Male
  Weight: 85 kg

DRUGS (12)
  1. UPADACITINIB [Suspect]
     Active Substance: UPADACITINIB
     Indication: Product used for unknown indication
     Route: 048
     Dates: start: 20220204
  2. PANTOPRAZOLE [Concomitant]
     Active Substance: PANTOPRAZOLE
     Indication: Barrett^s oesophagus
     Route: 048
     Dates: start: 20211220
  3. STREPTOCOCCUS PNEUMONIAE [Concomitant]
     Indication: Product used for unknown indication
     Dates: start: 201902
  4. STREPTOCOCCUS PNEUMONIAE [Concomitant]
     Indication: Product used for unknown indication
     Dates: start: 201904
  5. Seasonal Influenza [Concomitant]
     Indication: Product used for unknown indication
     Dates: start: 20210526
  6. Seasonal Influenza [Concomitant]
     Indication: Product used for unknown indication
     Dates: start: 20220412
  7. coronavirus vaccine [Concomitant]
     Indication: Severe acute respiratory syndrome
     Dates: start: 20220831, end: 20220831
  8. coronavirus vaccine [Concomitant]
     Indication: Severe acute respiratory syndrome
     Dates: start: 20210929, end: 20210929
  9. coronavirus vaccine [Concomitant]
     Indication: Severe acute respiratory syndrome
     Dates: start: 20210804, end: 20210804
  10. coronavirus vaccine [Concomitant]
     Indication: Severe acute respiratory syndrome
     Dates: start: 20220207, end: 20220207
  11. PREDNISONE [Concomitant]
     Active Substance: PREDNISONE
     Indication: Product used for unknown indication
     Dosage: 5 MILLIGRAM
     Dates: start: 202110, end: 20220216
  12. PREDNISONE [Concomitant]
     Active Substance: PREDNISONE
     Indication: Product used for unknown indication
     Dates: start: 201803, end: 201906

REACTIONS (1)
  - Squamous cell carcinoma of skin [Recovered/Resolved]

NARRATIVE: CASE EVENT DATE: 20220910
